FAERS Safety Report 25219005 (Version 1)
Quarter: 2025Q2

REPORT INFORMATION
  Report Type: Report from Study
  Country: BR (occurrence: BR)
  Receive Date: 20250421
  Receipt Date: 20250421
  Transmission Date: 20250717
  Serious: Yes (Hospitalization, Disabling, Other)
  Sender: CELLTRION
  Company Number: BR-CELLTRION INC.-2023BR022982

PATIENT

DRUGS (12)
  1. RITUXIMAB-ABBS [Suspect]
     Active Substance: RITUXIMAB-ABBS
     Indication: Immunoglobulin G4 related disease
     Route: 042
  2. RITUXIMAB-ABBS [Suspect]
     Active Substance: RITUXIMAB-ABBS
     Route: 042
     Dates: start: 20230729
  3. RITUXIMAB-ABBS [Suspect]
     Active Substance: RITUXIMAB-ABBS
  4. RITUXIMAB-ABBS [Suspect]
     Active Substance: RITUXIMAB-ABBS
     Route: 042
     Dates: start: 20231129
  5. PREGABALIN [Concomitant]
     Active Substance: PREGABALIN
     Indication: Sleep disorder
     Route: 048
  6. PREGABALIN [Concomitant]
     Active Substance: PREGABALIN
     Indication: Pain
  7. AMITRIPTYLINE [Concomitant]
     Active Substance: AMITRIPTYLINE
     Indication: Sleep disorder
     Route: 048
  8. AMITRIPTYLINE [Concomitant]
     Active Substance: AMITRIPTYLINE
     Indication: Pain
  9. TROPIC [Concomitant]
     Route: 048
  10. METHOTREXATE [Concomitant]
     Active Substance: METHOTREXATE
     Indication: Product used for unknown indication
     Dosage: 6 PILLS A WEEK
     Route: 048
  11. METHENAMINE;METHYLTHIONINIUM CHLORIDE [Concomitant]
     Indication: Immunoglobulin G4 related disease
     Route: 048
  12. FEXOFENADINE [Concomitant]
     Active Substance: FEXOFENADINE HYDROCHLORIDE

REACTIONS (12)
  - Disability [Recovered/Resolved]
  - Hypersensitivity [Recovering/Resolving]
  - Kidney infection [Recovered/Resolved]
  - COVID-19 [Recovered/Resolved]
  - Renal pain [Recovered/Resolved]
  - Gait disturbance [Recovered/Resolved]
  - Pyrexia [Recovered/Resolved]
  - Vomiting [Recovered/Resolved]
  - Pain [Recovered/Resolved]
  - Pain in extremity [Not Recovered/Not Resolved]
  - Drug effective for unapproved indication [Unknown]
  - Off label use [Unknown]
